FAERS Safety Report 16154587 (Version 2)
Quarter: 2019Q2

REPORT INFORMATION
  Report Type: Spontaneous
  Country: US (occurrence: US)
  Receive Date: 20190403
  Receipt Date: 20190409
  Transmission Date: 20190711
  Serious: Yes (Hospitalization)
  Sender: FDA-Public Use
  Company Number: US-VERTEX PHARMACEUTICALS-2019-002781

PATIENT
  Age: 50 Year
  Sex: Female

DRUGS (7)
  1. SYMDEKO [Suspect]
     Active Substance: IVACAFTOR\TEZACAFTOR
     Indication: CYSTIC FIBROSIS
     Dosage: TEZACAFTOR 100 MG, IVACAFTOR 150 MG, QAM; IVACAFTOR 150 MG QPM
     Route: 048
     Dates: start: 20180404
  2. TOBRAMYCIN. [Concomitant]
     Active Substance: TOBRAMYCIN
  3. NOVOLOG [Concomitant]
     Active Substance: INSULIN ASPART
  4. SYMBICORT [Concomitant]
     Active Substance: BUDESONIDE\FORMOTEROL FUMARATE DIHYDRATE
  5. ALBUTEROL                          /00139501/ [Concomitant]
     Active Substance: ALBUTEROL
  6. LANTUS [Concomitant]
     Active Substance: INSULIN GLARGINE
  7. CAYSTON [Concomitant]
     Active Substance: AZTREONAM

REACTIONS (2)
  - Influenza [Unknown]
  - Infective pulmonary exacerbation of cystic fibrosis [Unknown]

NARRATIVE: CASE EVENT DATE: 20190314
